FAERS Safety Report 17279746 (Version 1)
Quarter: 2020Q1

REPORT INFORMATION
  Report Type: Spontaneous
  Country: GB (occurrence: GB)
  Receive Date: 20200116
  Receipt Date: 20200116
  Transmission Date: 20200409
  Serious: Yes (Other)
  Sender: FDA-Public Use
  Company Number: GB-TEVA-2020-GB-1167249

PATIENT
  Age: 50 Year
  Sex: Female
  Weight: 51.25 kg

DRUGS (4)
  1. COCODAMOL [Concomitant]
     Active Substance: ACETAMINOPHEN\CODEINE PHOSPHATE
  2. ERYTHROMYCIN. [Suspect]
     Active Substance: ERYTHROMYCIN
     Indication: TOOTH ABSCESS
     Dosage: 250 GRAM
     Route: 048
     Dates: start: 20191127, end: 20191209
  3. TRAMADOL. [Suspect]
     Active Substance: TRAMADOL
     Indication: TOOTH ABSCESS
     Dosage: 50 MG
     Route: 048
     Dates: start: 20191128, end: 20191128
  4. GABAPENTIN. [Concomitant]
     Active Substance: GABAPENTIN

REACTIONS (3)
  - Papule [Unknown]
  - Palpitations [Recovered/Resolved]
  - Pruritus [Recovered/Resolved]

NARRATIVE: CASE EVENT DATE: 20191127
